FAERS Safety Report 5831449-8 (Version None)
Quarter: 2008Q3

REPORT INFORMATION
  Report Type: 
  Country: None (occurrence: None)
  Receive Date: 20080801
  Receipt Date: 20080722
  Transmission Date: 20090109
  Serious: Yes (Hospitalization)
  Sender: FDA-Public Use
  Company Number: ES-PFIZER INC-2008060541

PATIENT
  Age: 86 Year
  Sex: Female

DRUGS (1)
  1. TRANKIMAZIN [Suspect]
     Route: 048
     Dates: start: 20071104, end: 20071113

REACTIONS (1)
  - ACUTE RESPIRATORY FAILURE [None]
